FAERS Safety Report 21880456 (Version 1)
Quarter: 2023Q1

REPORT INFORMATION
  Report Type: Spontaneous
  Country: AT (occurrence: AT)
  Receive Date: 20230118
  Receipt Date: 20230118
  Transmission Date: 20230417
  Serious: Yes (Other)
  Sender: FDA-Public Use
  Company Number: AT-ROCHE-3233891

PATIENT
  Age: 14 Year
  Sex: Male

DRUGS (9)
  1. FENOFIBRATE [Suspect]
     Active Substance: FENOFIBRATE
     Indication: Medulloblastoma recurrent
     Dosage: 90 MILLIGRAM/SQ. METER, QD (MAX. 200 MG)
     Route: 048
  2. CYTARABINE [Suspect]
     Active Substance: CYTARABINE
     Indication: Medulloblastoma recurrent
     Dosage: 0-3 YEARS 25 MG, 3-9 YEARS 35 MG, }9 YEARS 50 MG
  3. BEVACIZUMAB [Suspect]
     Active Substance: BEVACIZUMAB
     Indication: Medulloblastoma recurrent
     Dosage: 10 MILLIGRAM/KILOGRAM, Q2W
     Route: 042
  4. ETOPOSIDE [Suspect]
     Active Substance: ETOPOSIDE
     Indication: Medulloblastoma recurrent
     Dosage: 0.5 MILLIGRAM ({1 YEARS 0.25 MG DAILY FOR 5 DAYS)
  5. ETOPOSIDE [Suspect]
     Active Substance: ETOPOSIDE
     Indication: Medulloblastoma recurrent
     Dosage: QD (35-50 MG/M2 DAILY)
     Route: 048
  6. CELECOXIB [Suspect]
     Active Substance: CELECOXIB
     Indication: Medulloblastoma recurrent
     Dosage: UNK UNK, BID
     Route: 048
  7. THALIDOMIDE [Suspect]
     Active Substance: THALIDOMIDE
     Indication: Medulloblastoma recurrent
     Dosage: 3 MILLIGRAM/KILOGRAM, QD
     Route: 048
  8. CYCLOPHOSPHAMIDE [Suspect]
     Active Substance: CYCLOPHOSPHAMIDE
     Indication: Medulloblastoma recurrent
     Dosage: 2.5 MILLIGRAM/KILOGRAM, QD (MAX. 100 MG)
     Route: 065
  9. EVEROLIMUS [Concomitant]
     Active Substance: EVEROLIMUS
     Dosage: UNK
     Route: 065

REACTIONS (3)
  - Acute myeloid leukaemia [Recovered/Resolved]
  - Hypertension [Unknown]
  - Proteinuria [Unknown]
